FAERS Safety Report 8053870-2 (Version None)
Quarter: 2012Q1

REPORT INFORMATION
  Report Type: 
  Country: None (occurrence: None)
  Receive Date: 20120110
  Receipt Date: 20111226
  Transmission Date: 20120608
  Serious: Yes (Other)
  Sender: FDA-Public Use
  Company Number: JP-1186471

PATIENT
  Age: 45 Year
  Sex: Male
  Weight: 63 kg

DRUGS (4)
  1. TRAVATAN Z [Suspect]
     Indication: NORMAL TENSION GLAUCOMA
     Dosage: 1 GTT QD OU OPHTHALMIC
     Route: 047
     Dates: start: 20080222, end: 20100719
  2. TRAVOPROST AND TIMOLOL [Suspect]
     Indication: NORMAL TENSION GLAUCOMA
     Dosage: 1 GTT QD OU OPHTHALMIC
     Route: 047
     Dates: start: 20100720, end: 20110517
  3. AZOPT [Suspect]
     Indication: NORMAL TENSION GLAUCOMA
     Dosage: 1 GTT BID OU OPHTHALMIC
     Route: 047
     Dates: start: 20110808
  4. AZOPT [Suspect]
     Indication: NORMAL TENSION GLAUCOMA
     Dosage: 1 GTT BID OU OPHTHALMIC
     Route: 047
     Dates: start: 20070118, end: 20110517

REACTIONS (6)
  - ERYTHEMA ANNULARE [None]
  - ASTHMA [None]
  - ERYTHEMA MULTIFORME [None]
  - PRURITUS GENERALISED [None]
  - SYSTEMIC LUPUS ERYTHEMATOSUS [None]
  - RASH [None]
